FAERS Safety Report 15506377 (Version 3)
Quarter: 2018Q4

REPORT INFORMATION
  Report Type: Spontaneous
  Country: JP (occurrence: JP)
  Receive Date: 20181016
  Receipt Date: 20181129
  Transmission Date: 20190205
  Serious: Yes (Hospitalization, Other)
  Sender: FDA-Public Use
  Company Number: JP-BRISTOL-MYERS SQUIBB COMPANY-BMS-2018-072686

PATIENT
  Age: 89 Year
  Sex: Male
  Weight: 48.9 kg

DRUGS (17)
  1. BUDESONIDE. [Concomitant]
     Active Substance: BUDESONIDE
     Indication: ASTHMA
     Dosage: UNK
     Route: 065
     Dates: start: 20180123
  2. SPIRIVA [Concomitant]
     Active Substance: TIOTROPIUM BROMIDE MONOHYDRATE
     Indication: ASTHMA
     Dosage: UNK, BID
     Route: 050
     Dates: start: 20180123
  3. ELIQUIS [Suspect]
     Active Substance: APIXABAN
     Indication: CEREBROVASCULAR ACCIDENT PROPHYLAXIS
     Dosage: 5 MG, DAILY
     Route: 048
     Dates: start: 20180509
  4. REMINYL [Concomitant]
     Active Substance: GALANTAMINE
     Indication: DEMENTIA
     Dosage: 8 MG, BID
     Route: 048
     Dates: start: 20180123
  5. MAGMITT [Concomitant]
     Active Substance: MAGNESIUM OXIDE
     Indication: CONSTIPATION
     Dosage: 330 MG, TID
     Route: 048
     Dates: start: 20180131
  6. BEPOTASTINE BESILATE [Concomitant]
     Active Substance: BEPOTASTINE BESILATE
     Indication: RHINITIS ALLERGIC
     Dosage: 10 MG, BID
     Route: 048
     Dates: start: 20180512
  7. SYMBICORT [Concomitant]
     Active Substance: BUDESONIDE\FORMOTEROL FUMARATE DIHYDRATE
     Indication: PRODUCT USED FOR UNKNOWN INDICATION
     Dosage: UNK UNK, BID
     Route: 065
  8. MEMANTINE HYDROCHLORIDE. [Concomitant]
     Active Substance: MEMANTINE HYDROCHLORIDE
     Indication: PRODUCT USED FOR UNKNOWN INDICATION
     Dosage: 10 MG, QD
     Route: 048
     Dates: start: 20171229, end: 20180104
  9. RISPERIDONE. [Concomitant]
     Active Substance: RISPERIDONE
     Indication: DEMENTIA
     Dosage: 0.5 MG, PRN
     Route: 048
     Dates: start: 20171222, end: 20180926
  10. HEPARINOID [Concomitant]
     Active Substance: CHONDROITIN SULFATE (BOVINE)
     Indication: DRY SKIN
     Dosage: UNK UNK, BID
     Route: 048
  11. MEMANTINE HYDROCHLORIDE. [Concomitant]
     Active Substance: MEMANTINE HYDROCHLORIDE
     Indication: PRODUCT USED FOR UNKNOWN INDICATION
     Dosage: 15 MG, QD
     Route: 048
     Dates: start: 20180105, end: 20180111
  12. MEMANTINE HYDROCHLORIDE. [Concomitant]
     Active Substance: MEMANTINE HYDROCHLORIDE
     Indication: DEMENTIA
     Dosage: 5 MG, QD
     Route: 048
     Dates: start: 20171222, end: 20171228
  13. BROTIZOLAM [Concomitant]
     Active Substance: BROTIZOLAM
     Indication: INSOMNIA
     Dosage: 0.25 MG, PRN
     Route: 048
     Dates: start: 20171222, end: 20180731
  14. CELECOX [Concomitant]
     Active Substance: CELECOXIB
     Indication: NECK PAIN
     Dosage: 100 MG, PRN
     Route: 048
     Dates: start: 20171222, end: 20180704
  15. MEMANTINE HYDROCHLORIDE. [Concomitant]
     Active Substance: MEMANTINE HYDROCHLORIDE
     Indication: PRODUCT USED FOR UNKNOWN INDICATION
     Dosage: 20 MG, QD
     Route: 048
     Dates: start: 20180112
  16. OFLOXACIN. [Concomitant]
     Active Substance: OFLOXACIN
     Indication: CONJUNCTIVITIS
     Dosage: UNK, BID
     Route: 065
  17. CELECOX [Concomitant]
     Active Substance: CELECOXIB
     Indication: BACK PAIN
     Route: 065

REACTIONS (2)
  - Melaena [Recovered/Resolved]
  - Anorectal disorder [Recovered/Resolved]

NARRATIVE: CASE EVENT DATE: 20180604
